FAERS Safety Report 14603504 (Version 2)
Quarter: 2018Q1

REPORT INFORMATION
  Report Type: Spontaneous
  Country: FR (occurrence: FR)
  Receive Date: 20180306
  Receipt Date: 20180308
  Transmission Date: 20180509
  Serious: Yes (Life-Threatening)
  Sender: FDA-Public Use
  Company Number: FR-CONCORDIA PHARMACEUTICALS INC.-E2B_00010397

PATIENT
  Age: 75 Year
  Sex: Female
  Weight: 64 kg

DRUGS (4)
  1. TRANSIPEG [Interacting]
     Active Substance: POLYETHYLENE GLYCOL 3350
     Indication: CONSTIPATION
     Route: 048
     Dates: start: 20171114, end: 20171115
  2. KAYEXALATE [Suspect]
     Active Substance: SODIUM POLYSTYRENE SULFONATE
     Route: 048
     Dates: start: 201510, end: 201510
  3. KAYEXALATE [Suspect]
     Active Substance: SODIUM POLYSTYRENE SULFONATE
     Indication: HYPERKALAEMIA
     Dosage: DEPUIS OCTOBRE 2015 DE FA?ON INTERMITTENTE PUIS DE FA?ON PERMANENTE DEPUIS MARS 2016
     Route: 048
     Dates: start: 20160301
  4. TOXICARB, SUSPENSION BUVABLE [Interacting]
     Active Substance: ACTIVATED CHARCOAL
     Indication: PRODUCT USED FOR UNKNOWN INDICATION
     Route: 048
     Dates: start: 20171015, end: 20171115

REACTIONS (2)
  - Drug interaction [Unknown]
  - Hypokalaemia [Recovered/Resolved]

NARRATIVE: CASE EVENT DATE: 20171101
